FAERS Safety Report 14347810 (Version 1)
Quarter: 2018Q1

REPORT INFORMATION
  Report Type: Other
  Country: None (occurrence: None)
  Receive Date: 20180103
  Receipt Date: 20180103
  Transmission Date: 20180509
  Serious: Yes (Other)
  Sender: FDA-Public Use
  Company Number: MERZ NORTH AMERICA, INC.-18MRZ-00001

PATIENT
  Age: 34 Year
  Sex: Female

DRUGS (1)
  1. XEOMIN [Suspect]
     Active Substance: INCOBOTULINUMTOXINA
     Indication: STRABISMUS
     Dosage: 2.5 INTERNATIONAL UNITS
     Route: 030

REACTIONS (4)
  - Retinal haemorrhage [Recovered/Resolved]
  - Vitreous haemorrhage [Recovered/Resolved]
  - Off label use [Recovered/Resolved]
  - Rhegmatogenous retinal detachment [Recovered/Resolved]
